FAERS Safety Report 7011537-3 (Version None)
Quarter: 2010Q3

REPORT INFORMATION
  Report Type: 
  Country: None (occurrence: None)
  Receive Date: 20100923
  Receipt Date: 20090715
  Transmission Date: 20110219
  Serious: No
  Sender: FDA-Public Use
  Company Number: US-WYE-H08294609

PATIENT
  Sex: Female
  Weight: 52.21 kg

DRUGS (8)
  1. PREMARIN [Suspect]
     Indication: HOT FLUSH
     Dosage: TOOK PREMARIN 0.625MG DAILY AND SWITCHED TO PREMARIN 0.45MG DAILY
     Route: 048
     Dates: start: 20070801, end: 20090212
  2. PREMARIN [Suspect]
     Indication: NIGHT SWEATS
  3. FLUOXETINE [Concomitant]
  4. CELEXA [Concomitant]
  5. ASPIRIN [Concomitant]
  6. VITAMIN B COMPLEX CAP [Concomitant]
  7. SIMVASTATIN [Concomitant]
  8. WELLBUTRIN [Concomitant]

REACTIONS (2)
  - HYPERSENSITIVITY [None]
  - LICHEN PLANUS [None]
